FAERS Safety Report 15661938 (Version 1)
Quarter: 2018Q4

REPORT INFORMATION
  Report Type: Spontaneous
  Country: FR (occurrence: FR)
  Receive Date: 20181127
  Receipt Date: 20181127
  Transmission Date: 20190205
  Serious: Yes (Other)
  Sender: FDA-Public Use
  Company Number: FR-PFIZER INC-2018480018

PATIENT
  Age: 31 Year
  Sex: Female

DRUGS (8)
  1. MAG 2 [MAGNESIUM CARBONATE] [Suspect]
     Active Substance: MAGNESIUM CARBONATE
     Dosage: 7 DF, SINGLE
     Route: 048
     Dates: start: 20170319, end: 20170319
  2. FLAGYL [METRONIDAZOLE BENZOATE] [Suspect]
     Active Substance: METRONIDAZOLE BENZOATE
     Dosage: 9 DF, SINGLE
     Route: 048
     Dates: start: 20170319, end: 20170319
  3. ESCITALOPRAM [Suspect]
     Active Substance: ESCITALOPRAM OXALATE
     Dosage: 140 MG, SINGLE
     Route: 048
     Dates: start: 20170319, end: 20170319
  4. XANAX [Suspect]
     Active Substance: ALPRAZOLAM
     Dosage: 49 DF, SINGLE
     Route: 048
     Dates: start: 20170319, end: 20170319
  5. ZOPICLONE [Suspect]
     Active Substance: ZOPICLONE
     Dosage: 30 MG, SINGLE
     Route: 048
     Dates: start: 20170319, end: 20170319
  6. DOLIPRANE [Suspect]
     Active Substance: ACETAMINOPHEN
     Dosage: 3 G, SINGLE
     Route: 048
     Dates: start: 20170319, end: 20170319
  7. CETIRIZINE [Suspect]
     Active Substance: CETIRIZINE HYDROCHLORIDE
     Dosage: 50 MG, SINGLE
     Route: 048
     Dates: start: 20170319, end: 20170319
  8. NAPROXENE [NAPROXEN SODIUM] [Concomitant]

REACTIONS (7)
  - Toxicity to various agents [Recovered/Resolved]
  - Hypotension [Recovered/Resolved]
  - Bradyphrenia [Recovered/Resolved]
  - Disturbance in attention [Recovered/Resolved]
  - Hypoglycaemia [Recovered/Resolved]
  - Suicide attempt [Recovered/Resolved]
  - Somnolence [Recovered/Resolved]

NARRATIVE: CASE EVENT DATE: 20170319
